FAERS Safety Report 7406905-1 (Version None)
Quarter: 2011Q2

REPORT INFORMATION
  Report Type: 
  Country: None (occurrence: None)
  Receive Date: 20110411
  Receipt Date: 20110331
  Transmission Date: 20111010
  Serious: Yes (Hospitalization)
  Sender: FDA-Public Use
  Company Number: US-SANOFI-AVENTIS-2011SA013932

PATIENT
  Age: 81 Year
  Sex: Male
  Weight: 94 kg

DRUGS (4)
  1. LANTUS [Suspect]
     Dosage: DOSE:18 UNIT(S)
     Route: 058
  2. OPTICLICK [Suspect]
     Indication: TYPE 2 DIABETES MELLITUS
     Dates: start: 20100101
  3. ALL OTHER THERAPEUTIC PRODUCTS [Concomitant]
  4. LANTUS [Suspect]
     Indication: TYPE 2 DIABETES MELLITUS
     Dosage: 15 UNIT IN AM AND 15 UNITS IN PM
     Route: 058
     Dates: start: 20100101

REACTIONS (6)
  - LIGAMENT RUPTURE [None]
  - FALL [None]
  - INJECTION SITE PAIN [None]
  - JOINT INJURY [None]
  - HEAD INJURY [None]
  - PRODUCT QUALITY ISSUE [None]
